FAERS Safety Report 6295304-4 (Version None)
Quarter: 2009Q3

REPORT INFORMATION
  Report Type: 
  Country: None (occurrence: None)
  Receive Date: 20090803
  Receipt Date: 20090720
  Transmission Date: 20100115
  Serious: Yes (Death, Hospitalization, Other)
  Sender: FDA-Public Use
  Company Number: US-TYCO HEALTHCARE/MALLINCKRODT-T200801231

PATIENT

DRUGS (25)
  1. OPTIMARK [Suspect]
     Indication: ANGIOGRAM
     Dosage: 30 ML, SINGLE
     Dates: start: 20050405, end: 20050405
  2. CONTRAST MEDIA [Suspect]
     Indication: ANGIOGRAM
     Dosage: UNK, SINGLE
     Dates: start: 20030917, end: 20030917
  3. CONTRAST MEDIA [Suspect]
     Indication: ARTERIOGRAM
     Dosage: UNK, SINGLE
     Dates: start: 20041027, end: 20041027
  4. SPIRONOLACTONE [Concomitant]
     Indication: CARDIAC FAILURE CONGESTIVE
  5. SPIRONOLACTONE [Concomitant]
     Indication: RENAL DISORDER
  6. PROCARDIA [Concomitant]
     Indication: ANGINA PECTORIS
  7. ZOCOR [Concomitant]
     Indication: BLOOD CHOLESTEROL
  8. ACCUPRIL [Concomitant]
     Indication: HYPERTENSION
  9. ACCUPRIL [Concomitant]
     Indication: CARDIAC FAILURE CONGESTIVE
  10. LASIX [Concomitant]
     Indication: CARDIAC FAILURE CONGESTIVE
  11. LASIX [Concomitant]
     Indication: RENAL DISORDER
  12. METOPROLOL TARTRATE [Concomitant]
     Indication: CARDIAC DISORDER
  13. METOPROLOL TARTRATE [Concomitant]
     Indication: HYPERTENSION
  14. NITROGLYCERIN [Concomitant]
     Indication: CHEST PAIN
     Dosage: UNK, TID
  15. DIATX                              /01502401/ [Concomitant]
     Indication: BLOOD PRESSURE
  16. ATENOLOL [Concomitant]
     Indication: BLOOD PRESSURE
     Dosage: UNK, BID
  17. DOXAZOSIN MESILATE [Concomitant]
     Indication: BLOOD PRESSURE
  18. PLAVIX [Concomitant]
     Indication: CARDIAC DISORDER
  19. NIFEDIPINE [Concomitant]
     Indication: ANGINA PECTORIS
  20. FUROSEMIDE [Concomitant]
     Indication: CARDIAC DISORDER
  21. ZAROXOLYN [Concomitant]
     Indication: CARDIAC FAILURE CONGESTIVE
  22. ZAROXOLYN [Concomitant]
     Indication: BLOOD PRESSURE
  23. ALTACE [Concomitant]
     Indication: BLOOD PRESSURE
  24. KLOR-CON [Concomitant]
     Indication: BLOOD PRESSURE
  25. DESONIDE [Concomitant]
     Indication: NEPHROGENIC SYSTEMIC FIBROSIS
     Dosage: TI-WEEK

REACTIONS (12)
  - BASAL CELL CARCINOMA [None]
  - CEREBROVASCULAR ACCIDENT [None]
  - DIARRHOEA [None]
  - FALL [None]
  - NEPHROGENIC SYSTEMIC FIBROSIS [None]
  - OFF LABEL USE [None]
  - PAIN IN EXTREMITY [None]
  - PANCREATITIS [None]
  - RENAL FAILURE CHRONIC [None]
  - SKIN LESION [None]
  - SUBDURAL HAEMATOMA [None]
  - TYPE 1 DIABETES MELLITUS [None]
